FAERS Safety Report 12646074 (Version 1)
Quarter: 2016Q3

REPORT INFORMATION
  Report Type: Spontaneous
  Country: US (occurrence: US)
  Receive Date: 20160811
  Receipt Date: 20160811
  Transmission Date: 20161109
  Serious: No
  Sender: FDA-Public Use
  Company Number: US-ELI_LILLY_AND_COMPANY-US201608004699

PATIENT
  Sex: Female

DRUGS (2)
  1. FORTEO [Suspect]
     Active Substance: TERIPARATIDE
     Indication: PRODUCT USED FOR UNKNOWN INDICATION
     Dosage: UNK UNK, QD
     Route: 065
     Dates: start: 201606
  2. FORTEO [Suspect]
     Active Substance: TERIPARATIDE
     Dosage: EVERY OTHER DAY
     Route: 065

REACTIONS (2)
  - Bone pain [Unknown]
  - Inappropriate schedule of drug administration [Unknown]
